FAERS Safety Report 23795002 (Version 1)
Quarter: 2024Q2

REPORT INFORMATION
  Report Type: Spontaneous
  Country: US (occurrence: None)
  Receive Date: 20240426
  Receipt Date: 20240426
  Transmission Date: 20240716
  Serious: No
  Sender: FDA-Public Use
  Company Number: None

PATIENT
  Sex: 0

DRUGS (1)
  1. AMLODIPINE [Suspect]
     Active Substance: AMLODIPINE BESYLATE

REACTIONS (7)
  - Eye infection [None]
  - Eye irritation [None]
  - Eye pain [None]
  - Visual impairment [None]
  - Joint swelling [None]
  - Peripheral swelling [None]
  - Peripheral swelling [None]
